FAERS Safety Report 4382670-X (Version None)
Quarter: 2004Q2

REPORT INFORMATION
  Report Type: 
  Country: None (occurrence: None)
  Receive Date: 20040622
  Receipt Date: 20040419
  Transmission Date: 20050107
  Serious: Yes (Hospitalization)
  Sender: FDA-Public Use
  Company Number: IT-BRISTOL-MYERS SQUIBB COMPANY-12563581

PATIENT
  Age: 66 Year
  Sex: Male

DRUGS (2)
  1. CETUXIMAB [Suspect]
     Indication: COLORECTAL CANCER METASTATIC
     Dosage: DRUG INTERRUPTED DUE TO EVENT
     Route: 042
     Dates: start: 20040401, end: 20040401
  2. IRINOTECAN [Suspect]
     Indication: COLORECTAL CANCER METASTATIC
     Dosage: 1ST INFUSION, DRUG INTERRUPTED DUE TO EVENT
     Route: 042
     Dates: start: 20040401, end: 20040401

REACTIONS (1)
  - DIARRHOEA HAEMORRHAGIC [None]
